FAERS Safety Report 10465088 (Version 6)
Quarter: 2015Q1

REPORT INFORMATION
  Report Type: Spontaneous
  Country: BR (occurrence: BR)
  Receive Date: 20140919
  Receipt Date: 20150330
  Transmission Date: 20150720
  Serious: Yes (Hospitalization, Other)
  Sender: FDA-Public Use
  Company Number: BR-GALDERMA-BR14003185

PATIENT
  Age: 19 Year
  Sex: Female
  Weight: 70 kg

DRUGS (6)
  1. EPIDUO [Suspect]
     Active Substance: ADAPALENE\BENZOYL PEROXIDE
     Route: 061
     Dates: start: 20140419, end: 20140715
  2. CLOB-X GEL [Suspect]
     Active Substance: CLOBETASOL PROPIONATE
     Indication: ALOPECIA AREATA
     Route: 061
     Dates: start: 20140613, end: 201408
  3. ACTINE [Suspect]
     Active Substance: GLIPIZIDE
     Indication: THERAPEUTIC SKIN CARE TOPICAL
     Dates: start: 20140419, end: 20140715
  4. MINOXIDIL. [Suspect]
     Active Substance: MINOXIDIL
     Indication: ALOPECIA AREATA
     Dosage: 5%
     Route: 061
     Dates: start: 20140616, end: 20140715
  5. EPISOL SPF30 [Suspect]
     Active Substance: OXYBENZONE\PADIMATE O
     Indication: PROPHYLAXIS
     Dates: start: 20140419, end: 20140715
  6. EPIDUO [Suspect]
     Active Substance: ADAPALENE\BENZOYL PEROXIDE
     Indication: ACNE
     Route: 061
     Dates: start: 2011, end: 2011

REACTIONS (8)
  - Skin burning sensation [Recovered/Resolved]
  - Premature separation of placenta [Recovered/Resolved]
  - Abortion missed [Recovered/Resolved]
  - Exposure during pregnancy [Recovered/Resolved]
  - Off label use [Unknown]
  - Urinary tract infection [Not Recovered/Not Resolved]
  - Dry skin [Recovered/Resolved]
  - Skin fragility [Recovered/Resolved]

NARRATIVE: CASE EVENT DATE: 20140715
